FAERS Safety Report 22244632 (Version 3)
Quarter: 2023Q2

REPORT INFORMATION
  Report Type: Report from Study
  Country: GR (occurrence: GR)
  Receive Date: 20230424
  Receipt Date: 20230509
  Transmission Date: 20230722
  Serious: Yes (Hospitalization)
  Sender: FDA-Public Use
  Company Number: GR-ABBVIE-4738474

PATIENT
  Age: 65 Year
  Sex: Male

DRUGS (8)
  1. CARBIDOPA\LEVODOPA [Suspect]
     Active Substance: CARBIDOPA\LEVODOPA
     Indication: Parkinson^s disease
     Dosage: MORNING DOSE: 12.0ML; CONTINUOUS RATE: 4.7ML/H; EXTRA DOSE: 2.0ML?PERCUTANEOUS J-TUBE
     Route: 050
  2. CARBIDOPA\LEVODOPA [Suspect]
     Active Substance: CARBIDOPA\LEVODOPA
     Dosage: MORNING DOSE: 12.0ML; CONTINUOUS RATE: 4.2ML/H; EXTRA DOSE: 1.0ML
     Route: 050
     Dates: start: 20221006
  3. CARBIDOPA\LEVODOPA [Suspect]
     Active Substance: CARBIDOPA\LEVODOPA
     Dosage: MORNING DOSE: 12.0ML; CONTINUOUS RATE: 4.3ML/H; EXTRA DOSE: 1.0ML
     Route: 050
     Dates: end: 20230503
  4. CARBIDOPA\LEVODOPA [Suspect]
     Active Substance: CARBIDOPA\LEVODOPA
     Dosage: MORNING DOSE: 12.0ML; CONTINUOUS RATE: 4.3ML/H; EXTRA DOSE: 1.2ML?PERCUTANEOUS J-TUBE
     Route: 050
  5. CARBIDOPA\LEVODOPA [Suspect]
     Active Substance: CARBIDOPA\LEVODOPA
     Dosage: MORNING DOSE: 12.0ML; CONTINUOUS RATE: 4.5ML/H; EXTRA DOSE: 1.8ML?PERCUTANEOUS J-TUBE
     Route: 050
  6. NORVASC [Concomitant]
     Active Substance: AMLODIPINE BESYLATE
     Indication: Hypertension
     Route: 048
  7. PRAMIPEXOLE [Concomitant]
     Active Substance: PRAMIPEXOLE
     Indication: Product used for unknown indication
     Dosage: 0.7 MG?FREQUENCY TEXT: 1 - ? - 1
     Route: 048
  8. DIOVAN [Concomitant]
     Active Substance: VALSARTAN
     Indication: Hypertension
     Route: 048

REACTIONS (9)
  - Musculoskeletal stiffness [Not Recovered/Not Resolved]
  - Pain [Not Recovered/Not Resolved]
  - Bradykinesia [Not Recovered/Not Resolved]
  - Peripheral swelling [Not Recovered/Not Resolved]
  - Gait disturbance [Recovering/Resolving]
  - Muscle rigidity [Not Recovered/Not Resolved]
  - Intentional medical device removal by patient [Unknown]
  - Treatment noncompliance [Unknown]
  - Device use issue [Unknown]

NARRATIVE: CASE EVENT DATE: 20230401
